FAERS Safety Report 17173715 (Version 1)
Quarter: 2019Q4

REPORT INFORMATION
  Report Type: Spontaneous
  Country: US (occurrence: US)
  Receive Date: 20191219
  Receipt Date: 20191219
  Transmission Date: 20200122
  Serious: Yes (Other)
  Sender: FDA-Public Use
  Company Number: US-SUPERNUS PHARMACEUTICALS, INC.-2019SUP00047

PATIENT
  Age: 33 Year
  Sex: Female
  Weight: 50.79 kg

DRUGS (4)
  1. OXTELLAR XR [Suspect]
     Active Substance: OXCARBAZEPINE
     Dosage: 3 TABLETS, 1X/DAY AT NIGHT
     Route: 048
  2. OXTELLAR XR [Suspect]
     Active Substance: OXCARBAZEPINE
     Dosage: 2 TABLETS, 1X/DAY AT NIGHT
     Route: 048
     Dates: start: 2017
  3. MULTIVITAMIN W/CALCIUM [Concomitant]
     Dosage: UNK, 1X/DAY
  4. OXTELLAR XR [Suspect]
     Active Substance: OXCARBAZEPINE
     Indication: SEIZURE
     Dosage: 2 TABLETS, 1X/DAY IN THE MORNING
     Route: 048
     Dates: start: 2017

REACTIONS (3)
  - Irritability [Not Recovered/Not Resolved]
  - Seizure [Unknown]
  - Arthralgia [Not Recovered/Not Resolved]

NARRATIVE: CASE EVENT DATE: 201901
